FAERS Safety Report 5391304-7 (Version None)
Quarter: 2007Q3

REPORT INFORMATION
  Report Type: 
  Country: None (occurrence: None)
  Receive Date: 20070719
  Receipt Date: 20070716
  Transmission Date: 20080115
  Serious: Yes (Other)
  Sender: FDA-Public Use
  Company Number: A0664314A

PATIENT
  Age: 79 Year
  Sex: Female

DRUGS (3)
  1. WELLBUTRIN XL [Suspect]
     Indication: DEPRESSION
     Dosage: 150MG PER DAY
     Route: 048
     Dates: start: 20070627
  2. SLEEPING PILL [Concomitant]
  3. MULTIPLE MEDICATIONS [Concomitant]

REACTIONS (4)
  - ABNORMAL BEHAVIOUR [None]
  - DYSGRAPHIA [None]
  - FEELING JITTERY [None]
  - NERVOUSNESS [None]
